FAERS Safety Report 19689313 (Version 5)
Quarter: 2021Q3

REPORT INFORMATION
  Report Type: Report from Study
  Country: CA (occurrence: CA)
  Receive Date: 20210812
  Receipt Date: 20210920
  Transmission Date: 20211014
  Serious: Yes (Other)
  Sender: FDA-Public Use
  Company Number: CA-BAUSCH-BL-2021-017407

PATIENT
  Age: 73 Year
  Sex: Male
  Weight: 52.21 kg

DRUGS (5)
  1. ATORVASTATIN [Concomitant]
     Active Substance: ATORVASTATIN
     Indication: PRODUCT USED FOR UNKNOWN INDICATION
  2. ASA [Concomitant]
     Active Substance: ASPIRIN
     Indication: PRODUCT USED FOR UNKNOWN INDICATION
  3. SILIQ [Suspect]
     Active Substance: BRODALUMAB
     Dosage: 210MG/1.5ML
     Route: 058
     Dates: start: 202106, end: 202107
  4. METFORMIN [Concomitant]
     Active Substance: METFORMIN HYDROCHLORIDE
     Indication: PRODUCT USED FOR UNKNOWN INDICATION
  5. SILIQ [Suspect]
     Active Substance: BRODALUMAB
     Indication: PSORIASIS
     Dosage: 210 MG/1.5ML, WEEK 0,1 AND 2
     Route: 058
     Dates: start: 20210420, end: 202105

REACTIONS (16)
  - Corneal transplant [Unknown]
  - Disease recurrence [Not Recovered/Not Resolved]
  - Decreased appetite [Unknown]
  - Peripheral swelling [Recovering/Resolving]
  - Dry mouth [Recovering/Resolving]
  - Therapy interrupted [Unknown]
  - Gait disturbance [Recovering/Resolving]
  - Arthralgia [Recovering/Resolving]
  - Atrial fibrillation [Unknown]
  - Abnormal loss of weight [Unknown]
  - Abdominal pain upper [Unknown]
  - Erythema [Recovering/Resolving]
  - Skin exfoliation [Recovering/Resolving]
  - Joint swelling [Recovering/Resolving]
  - Therapy cessation [Unknown]
  - Pain in extremity [Recovering/Resolving]

NARRATIVE: CASE EVENT DATE: 2021
